FAERS Safety Report 10355346 (Version 2)
Quarter: 2014Q3

REPORT INFORMATION
  Report Type: Spontaneous
  Country: NL (occurrence: NL)
  Receive Date: 20140731
  Receipt Date: 20140807
  Transmission Date: 20150326
  Serious: Yes (Life-Threatening)
  Sender: FDA-Public Use
  Company Number: NL-PFIZER INC-2014211193

PATIENT
  Age: 50 Year
  Sex: Female

DRUGS (5)
  1. ATORAB [Suspect]
     Active Substance: ATORVASTATIN CALCIUM
     Indication: HYPERCHOLESTEROLAEMIA
     Dosage: UNK
     Route: 048
     Dates: start: 20120328
  2. INSULIN ASPART [Concomitant]
     Active Substance: INSULIN ASPART
     Dosage: UNK
     Dates: start: 20010601
  3. RAMIPRIL. [Suspect]
     Active Substance: RAMIPRIL
     Indication: HYPERTENSION
     Dosage: 10 MG, DAILY
     Route: 048
     Dates: start: 20120629, end: 20140616
  4. DESOGESTREL/ETHINYLESTRADIOL [Concomitant]
     Dosage: UNK
     Dates: start: 19970319
  5. EZETROL [Concomitant]
     Active Substance: EZETIMIBE
     Dosage: UNK
     Dates: start: 20040917

REACTIONS (1)
  - Swollen tongue [Recovered/Resolved]

NARRATIVE: CASE EVENT DATE: 201407
